FAERS Safety Report 5404374-4 (Version None)
Quarter: 2007Q3

REPORT INFORMATION
  Report Type: 
  Country: None (occurrence: None)
  Receive Date: 20070802
  Receipt Date: 20070724
  Transmission Date: 20080115
  Serious: Yes (Other)
  Sender: FDA-Public Use
  Company Number: GB-PFIZER INC-2007054635

PATIENT
  Age: 52 Year
  Sex: Female

DRUGS (7)
  1. CHAMPIX [Suspect]
     Indication: SMOKING CESSATION THERAPY
     Route: 048
  2. SIMVASTATIN [Concomitant]
  3. LIVIAL [Concomitant]
  4. ACETAMINOPHEN W/ CODEINE [Concomitant]
  5. GINKGO BILOBA LEAF EXTRACT [Concomitant]
  6. VITAMIN CAP [Concomitant]
  7. ZOLPIDEM TARTRATE [Concomitant]

REACTIONS (5)
  - DYSPNOEA [None]
  - HYPOAESTHESIA FACIAL [None]
  - INFLUENZA LIKE ILLNESS [None]
  - SINUS DISORDER [None]
  - SINUS HEADACHE [None]
